FAERS Safety Report 5490472-6 (Version None)
Quarter: 2007Q4

REPORT INFORMATION
  Report Type: 
  Country: None (occurrence: None)
  Receive Date: 20071019
  Receipt Date: 20071017
  Transmission Date: 20080405
  Serious: Yes (Life-Threatening, Hospitalization)
  Sender: FDA-Public Use
  Company Number: PHBS2007ES17226

PATIENT
  Age: 79 Year
  Sex: Female

DRUGS (6)
  1. ATENOLOL [Suspect]
     Indication: ISCHAEMIC CARDIOMYOPATHY
     Dosage: UNK, UNK
     Dates: start: 20050101, end: 20070630
  2. MASDIL [Suspect]
     Indication: ISCHAEMIC CARDIOMYOPATHY
     Dosage: 60 MG, UNK
     Dates: start: 20050101, end: 20070630
  3. PREDNISONE [Concomitant]
     Indication: EYE DISORDER
     Dates: start: 20050101
  4. ACETYLSALICYLIC ACID [Concomitant]
     Indication: ISCHAEMIC CARDIOMYOPATHY
     Route: 048
     Dates: start: 20050101
  5. ATORVASTATIN CALCIUM [Concomitant]
     Indication: DYSLIPIDAEMIA
     Dates: start: 20050101
  6. EXELON [Suspect]
     Indication: DEMENTIA
     Dosage: 2 MG/ML, UNK
     Route: 048
     Dates: start: 20070330, end: 20070630

REACTIONS (5)
  - BRADYCARDIA [None]
  - CARDIAC PACEMAKER INSERTION [None]
  - DRUG INTERACTION [None]
  - SINUS ARREST [None]
  - SYNCOPE [None]
